FAERS Safety Report 20074383 (Version 2)
Quarter: 2021Q4

REPORT INFORMATION
  Report Type: Spontaneous
  Country: US (occurrence: US)
  Receive Date: 20211116
  Receipt Date: 20211123
  Transmission Date: 20220303
  Serious: Yes (Hospitalization, Other)
  Sender: FDA-Public Use
  Company Number: US-PFIZER INC-202101550986

PATIENT
  Age: 48 Year
  Sex: Male

DRUGS (1)
  1. FILGRASTIM [Suspect]
     Active Substance: FILGRASTIM
     Dosage: UNK

REACTIONS (3)
  - Glomerulonephritis rapidly progressive [Recovering/Resolving]
  - Glomerulonephritis proliferative [Recovering/Resolving]
  - Condition aggravated [Recovering/Resolving]
